FAERS Safety Report 17919795 (Version 2)
Quarter: 2020Q3

REPORT INFORMATION
  Report Type: Spontaneous
  Country: US (occurrence: US)
  Receive Date: 20200619
  Receipt Date: 20200915
  Transmission Date: 20201103
  Serious: Yes (Other)
  Sender: FDA-Public Use
  Company Number: US-GILEAD-2020-0473915

PATIENT
  Age: 41 Year
  Sex: Male
  Weight: 76.8 kg

DRUGS (19)
  1. CEFTRIAXONE. [Concomitant]
     Active Substance: CEFTRIAXONE
     Indication: PNEUMONIA BACTERIAL
     Dosage: 1 G, QD
     Route: 042
     Dates: start: 20200526, end: 20200530
  2. REMDESIVIR. [Suspect]
     Active Substance: REMDESIVIR
     Dosage: 100 MG, QD
     Route: 042
     Dates: start: 20200531, end: 20200601
  3. ASPIRIN (E.C.) [Concomitant]
     Active Substance: ASPIRIN
     Indication: THROMBOCYTOSIS
     Dosage: 81 MG
     Route: 048
     Dates: start: 20200529, end: 20200603
  4. ENOXAPARIN [Concomitant]
     Active Substance: ENOXAPARIN
     Indication: COVID-19
     Dosage: 80 MG Q12H
     Route: 058
     Dates: start: 20200530, end: 20200603
  5. FUROSEMIDE. [Concomitant]
     Active Substance: FUROSEMIDE
     Indication: POLYURIA
     Dosage: 40 MG 2?3 PER DAY
     Route: 042
     Dates: start: 20200527, end: 20200531
  6. NITRIC OXIDE. [Concomitant]
     Active Substance: NITRIC OXIDE
     Dosage: UNK
     Route: 055
     Dates: start: 20200526, end: 20200531
  7. AZITHROMYCIN ANHYDROUS. [Concomitant]
     Active Substance: AZITHROMYCIN ANHYDROUS
     Indication: COVID-19
     Dosage: 250 MG, QD
     Route: 042
     Dates: start: 20200527, end: 20200530
  8. ENOXAPARIN [Concomitant]
     Active Substance: ENOXAPARIN
     Indication: THROMBOSIS PROPHYLAXIS
     Dosage: 40 MG Q12H
     Route: 058
     Dates: start: 20200526, end: 20200529
  9. GUAIFENESIN. [Concomitant]
     Active Substance: GUAIFENESIN
     Indication: ILL-DEFINED DISORDER
     Dosage: 600 MG Q12H
     Route: 048
     Dates: start: 20200528, end: 20200603
  10. MELATONIN [Concomitant]
     Active Substance: MELATONIN
     Dosage: 3 MG, QHS, PRN
     Route: 048
     Dates: start: 20200526, end: 20200603
  11. METHYLPREDNISOLONE. [Concomitant]
     Active Substance: METHYLPREDNISOLONE
     Indication: PNEUMONIA
     Dosage: 40 MG, BID
     Route: 042
     Dates: start: 20200526, end: 20200527
  12. METHYLPREDNISOLONE. [Concomitant]
     Active Substance: METHYLPREDNISOLONE
     Indication: HYPOXIA
  13. REMDESIVIR. [Suspect]
     Active Substance: REMDESIVIR
     Indication: COVID-19
     Dosage: 200 MG, QD
     Route: 042
     Dates: start: 20200530, end: 20200530
  14. AZITHROMYCIN ANHYDROUS. [Concomitant]
     Active Substance: AZITHROMYCIN ANHYDROUS
     Indication: PNEUMONIA BACTERIAL
     Dosage: 500 MG, ONCE
     Route: 042
     Dates: start: 20200526, end: 20200526
  15. SENNA AND DOCUSATE SODIUM [Concomitant]
     Active Substance: DOCUSATE SODIUM\SENNOSIDES
     Dosage: 1 TAB QHS
     Route: 048
     Dates: start: 20200528, end: 20200602
  16. BENZONATATE. [Concomitant]
     Active Substance: BENZONATATE
     Indication: COUGH
     Dosage: 100 MG, TID, PRN
     Route: 048
     Dates: start: 20200526, end: 20200602
  17. TOCILIZUMAB. [Concomitant]
     Active Substance: TOCILIZUMAB
     Indication: COVID-19
     Dosage: 600 MG, ONCE
     Route: 042
     Dates: start: 20200528, end: 20200528
  18. ACETAMINOPHEN. [Concomitant]
     Active Substance: ACETAMINOPHEN
     Indication: PAIN
     Dosage: 1000 MG, Q6H, PRN
     Route: 048
     Dates: start: 20200526, end: 20200527
  19. ACETAMINOPHEN. [Concomitant]
     Active Substance: ACETAMINOPHEN
     Indication: PYREXIA

REACTIONS (1)
  - Alanine aminotransferase increased [Unknown]

NARRATIVE: CASE EVENT DATE: 20200601
